FAERS Safety Report 4691989-4 (Version None)
Quarter: 2005Q2

REPORT INFORMATION
  Report Type: 
  Country: None (occurrence: None)
  Receive Date: 20050616
  Receipt Date: 20050616
  Transmission Date: 20051028
  Serious: Yes (Other)
  Sender: FDA-Public Use
  Company Number: None

PATIENT
  Sex: Male
  Weight: 58.9676 kg

DRUGS (5)
  1. ATAZANAVIR   150MG    BMS [Suspect]
     Indication: ACQUIRED IMMUNODEFICIENCY SYNDROME
     Dosage: 150MG    2    ORAL
     Route: 048
     Dates: start: 20050525, end: 20050603
  2. ATAZANAVIR   150MG    BMS [Suspect]
     Indication: HIV INFECTION
     Dosage: 150MG    2    ORAL
     Route: 048
     Dates: start: 20050525, end: 20050603
  3. DAPSONE [Concomitant]
  4. EPZICOM [Concomitant]
  5. RITONAVIR [Concomitant]

REACTIONS (2)
  - JAUNDICE [None]
  - OCULAR ICTERUS [None]
